FAERS Safety Report 9748083 (Version 1)
Quarter: 2013Q4

REPORT INFORMATION
  Report Type: Spontaneous
  Country: US (occurrence: None)
  Receive Date: 20131209
  Receipt Date: 20131209
  Transmission Date: 20140711
  Serious: Yes (Life-Threatening)
  Sender: FDA-Public Use
  Company Number: None

PATIENT
  Age: 27 Year
  Sex: Male
  Weight: 86.4 kg

DRUGS (3)
  1. NOVOLOG [Suspect]
     Indication: TYPE 1 DIABETES MELLITUS
     Dosage: 2 UNITS BASAL SUBCUTANEOUSLY
     Route: 058
     Dates: start: 201308, end: 201310
  2. LISINOPRIL [Concomitant]
  3. MULTIVITAMIN [Concomitant]

REACTIONS (4)
  - Diabetic ketoacidosis [None]
  - Incorrect product storage [None]
  - Product physical consistency issue [None]
  - Drug ineffective [None]
